FAERS Safety Report 11492015 (Version 2)
Quarter: 2015Q3

REPORT INFORMATION
  Report Type: Spontaneous
  Country: AU (occurrence: AU)
  Receive Date: 20150910
  Receipt Date: 20150914
  Transmission Date: 20151125
  Serious: Yes (Other)
  Sender: FDA-Public Use
  Company Number: AU-ABBVIE-15P-008-1461485-00

PATIENT
  Sex: Male

DRUGS (2)
  1. EPILIM [Suspect]
     Active Substance: VALPROATE SODIUM
     Indication: PRODUCT USED FOR UNKNOWN INDICATION
     Dosage: UNKNOWN FREQUENCY
     Route: 048
  2. EPILIM [Suspect]
     Active Substance: VALPROATE SODIUM
     Dosage: UNKNOWN FREQUENCY
     Route: 048

REACTIONS (4)
  - Petit mal epilepsy [Recovered/Resolved]
  - Accident [Recovered/Resolved]
  - Enuresis [Recovered/Resolved]
  - Fatigue [Recovered/Resolved]
